FAERS Safety Report 8081638-X (Version None)
Quarter: 2012Q1

REPORT INFORMATION
  Report Type: 
  Country: None (occurrence: None)
  Receive Date: 20120130
  Receipt Date: 20120124
  Transmission Date: 20120608
  Serious: Yes (Life-Threatening, Congenital Anomaly, Other)
  Sender: FDA-Public Use
  Company Number: US-PFIZER INC-2011212564

PATIENT
  Sex: Male

DRUGS (1)
  1. ZOLOFT [Suspect]
     Indication: BIPOLAR I DISORDER
     Dosage: UNK
     Route: 064
     Dates: start: 19990101, end: 20020923

REACTIONS (3)
  - SKULL MALFORMATION [None]
  - CLEFT PALATE [None]
  - MATERNAL EXPOSURE TIMING UNSPECIFIED [None]
